FAERS Safety Report 6279339-3 (Version None)
Quarter: 2009Q3

REPORT INFORMATION
  Report Type: 
  Country: None (occurrence: None)
  Receive Date: 20090723
  Receipt Date: 20081215
  Transmission Date: 20100115
  Serious: No
  Sender: FDA-Public Use
  Company Number: US-AMGEN-KDL324107

PATIENT
  Sex: Male
  Weight: 91.7 kg

DRUGS (6)
  1. PROCRIT [Suspect]
     Indication: ANAEMIA
     Dates: start: 20081212
  2. LENOXIN [Concomitant]
  3. MONOPRIL [Concomitant]
  4. FISH OIL [Concomitant]
  5. VITAMINS [Concomitant]
  6. UNSPECIFIED MEDICATION [Concomitant]

REACTIONS (2)
  - ASTHENIA [None]
  - INSOMNIA [None]
